FAERS Safety Report 15587057 (Version 1)
Quarter: 2018Q4

REPORT INFORMATION
  Report Type: Spontaneous
  Country: US (occurrence: US)
  Receive Date: 20181102
  Receipt Date: 20181102
  Transmission Date: 20190205
  Serious: Yes (Hospitalization)
  Sender: FDA-Public Use
  Company Number: None

PATIENT
  Age: 66 Year
  Sex: Female
  Weight: 80.1 kg

DRUGS (13)
  1. ACYCLOVIR. [Concomitant]
     Active Substance: ACYCLOVIR
  2. AZITHROMYCIN ANHYDROUS. [Concomitant]
     Active Substance: AZITHROMYCIN ANHYDROUS
  3. ALPRAZOLAM. [Concomitant]
     Active Substance: ALPRAZOLAM
  4. LISINOPRIL. [Concomitant]
     Active Substance: LISINOPRIL
  5. REVLIMID [Concomitant]
     Active Substance: LENALIDOMIDE
  6. BACTRIM [Concomitant]
     Active Substance: SULFAMETHOXAZOLE\TRIMETHOPRIM
  7. ASPIRIN. [Concomitant]
     Active Substance: ASPIRIN
  8. VIT D-3 [Concomitant]
  9. DEXAMETHASONE. [Concomitant]
     Active Substance: DEXAMETHASONE
  10. VELCADE [Concomitant]
     Active Substance: BORTEZOMIB
  11. ZOMETA [Suspect]
     Active Substance: ZOLEDRONIC ACID
     Indication: PLASMA CELL MYELOMA
     Dosage: ?          QUANTITY:1 DF DOSAGE FORM;?
     Route: 058
     Dates: start: 20180730
  12. CYANOCOBALAMIN (VIT B-12) [Concomitant]
  13. CALCIUM [Concomitant]
     Active Substance: CALCIUM

REACTIONS (6)
  - Eye swelling [None]
  - Ocular discomfort [None]
  - Photophobia [None]
  - Headache [None]
  - Eye pain [None]
  - Cellulitis [None]

NARRATIVE: CASE EVENT DATE: 20180801
